FAERS Safety Report 12939057 (Version 3)
Quarter: 2016Q4

REPORT INFORMATION
  Report Type: Report from Study
  Country: US (occurrence: US)
  Receive Date: 20161115
  Receipt Date: 20161209
  Transmission Date: 20170207
  Serious: Yes (Hospitalization)
  Sender: FDA-Public Use
  Company Number: US-ROCHE-1853547

PATIENT
  Age: 73 Year
  Sex: Male
  Weight: 73.8 kg

DRUGS (28)
  1. METOPROLOL. [Concomitant]
     Active Substance: METOPROLOL
     Indication: HYPERTENSION
     Route: 048
     Dates: start: 2001
  2. DOCUSATE [Concomitant]
     Active Substance: DOCUSATE
     Indication: CONSTIPATION
     Route: 048
  3. CEFTAROLINE [Concomitant]
     Active Substance: CEFTAROLINE
     Dosage: 300 MG 15 ML?CEFTEROLINE SODIUM CHLORIDE 0.9% 250 ML
     Route: 042
  4. DEXAMETHASONE. [Concomitant]
     Active Substance: DEXAMETHASONE
     Route: 042
     Dates: start: 20161020
  5. DOXAZOSIN [Concomitant]
     Active Substance: DOXAZOSIN\DOXAZOSIN MESYLATE
     Route: 048
  6. SODIUM CHLORIDE. [Concomitant]
     Active Substance: SODIUM CHLORIDE
     Dosage: CEFTEROLINE SODIUM CHLORIDE 0.9% 250 ML
     Route: 042
  7. NORCO [Concomitant]
     Active Substance: ACETAMINOPHEN\HYDROCODONE BITARTRATE
     Indication: FLANK PAIN
     Route: 065
     Dates: start: 20161023
  8. ASPIRIN. [Concomitant]
     Active Substance: ASPIRIN
     Route: 048
     Dates: start: 2001
  9. LOSARTAN. [Concomitant]
     Active Substance: LOSARTAN
     Indication: HYPERTENSION
     Route: 048
     Dates: start: 2001
  10. METOPROLOL. [Concomitant]
     Active Substance: METOPROLOL
     Dosage: XL TABLET
     Route: 048
  11. NYSTATIN. [Concomitant]
     Active Substance: NYSTATIN
     Route: 048
  12. CIPROFLOXACIN. [Concomitant]
     Active Substance: CIPROFLOXACIN
     Route: 048
  13. ALOXI [Concomitant]
     Active Substance: PALONOSETRON HYDROCHLORIDE
     Indication: PREMEDICATION
     Route: 042
     Dates: start: 20161020
  14. ATORVASTATIN [Concomitant]
     Active Substance: ATORVASTATIN
     Indication: HYPERCHOLESTEROLAEMIA
     Route: 048
     Dates: start: 2001
  15. ATEZOLIZUMAB [Suspect]
     Active Substance: ATEZOLIZUMAB
     Indication: TRANSITIONAL CELL CARCINOMA
     Dosage: MOST RECENT DOSE: 20/OCT/2016
     Route: 042
     Dates: start: 20161020, end: 20161103
  16. ASPIRIN. [Concomitant]
     Active Substance: ASPIRIN
     Indication: CARDIOVASCULAR EVENT PROPHYLAXIS
     Route: 065
     Dates: start: 20160922
  17. MEGESTROL [Concomitant]
     Active Substance: MEGESTROL
     Dosage: 400 MG 10 ML
     Route: 048
  18. HYDRALAZINE [Concomitant]
     Active Substance: HYDRALAZINE HYDROCHLORIDE
     Dosage: 10 MG 0.5 ML
     Route: 042
  19. GEMCITABINE [Suspect]
     Active Substance: GEMCITABINE\GEMCITABINE HYDROCHLORIDE
     Indication: TRANSITIONAL CELL CARCINOMA
     Dosage: MOST RECENT DOSE (1850 MG): 20/OCT/2016
     Route: 042
     Dates: start: 20161020, end: 20161103
  20. FAMOTIDINE. [Concomitant]
     Active Substance: FAMOTIDINE
     Route: 048
  21. LEVALBUTEROL. [Concomitant]
     Active Substance: LEVALBUTEROL
     Dosage: 0.63 MG/ 3 ML
     Route: 065
  22. DEXAMETHASONE. [Concomitant]
     Active Substance: DEXAMETHASONE
     Indication: PREMEDICATION
     Dosage: 4 MG/ML
     Route: 042
  23. SODIUM CHLORIDE. [Concomitant]
     Active Substance: SODIUM CHLORIDE
     Dosage: 125 ML PER HOUR
     Route: 042
  24. LABETALOL [Concomitant]
     Active Substance: LABETALOL\LABETALOL HYDROCHLORIDE
     Dosage: 10 MG 2 ML
     Route: 042
  25. CARBOPLATIN. [Suspect]
     Active Substance: CARBOPLATIN
     Indication: TRANSITIONAL CELL CARCINOMA
     Dosage: AREA UNDER THE CONCENTRATION CURVE (AUC) = 6 MG/ML/MIN?MOST RECENT DOSE (307 MG): 20/OCT/2016
     Route: 042
     Dates: start: 20161020, end: 20161103
  26. ACETAMINOPHEN. [Concomitant]
     Active Substance: ACETAMINOPHEN
     Indication: FLANK PAIN
     Route: 048
  27. VITAMIN B KOMPLEX [Concomitant]
     Route: 048
  28. ONDANSETRON [Concomitant]
     Active Substance: ONDANSETRON
     Dosage: 4 MG 2 ML
     Route: 042

REACTIONS (3)
  - Fall [Unknown]
  - Subdural haematoma [Not Recovered/Not Resolved]
  - Head injury [Not Recovered/Not Resolved]

NARRATIVE: CASE EVENT DATE: 20161109
